APPROVED DRUG PRODUCT: LANSOPRAZOLE
Active Ingredient: LANSOPRAZOLE
Strength: 15MG
Dosage Form/Route: CAPSULE, DELAYED REL PELLETS;ORAL
Application: A203964 | Product #001
Applicant: NOVITIUM PHARMA LLC
Approved: Oct 17, 2018 | RLD: No | RS: No | Type: DISCN